FAERS Safety Report 4691200-4 (Version None)
Quarter: 2005Q2

REPORT INFORMATION
  Report Type: 
  Country: None (occurrence: None)
  Receive Date: 20050614
  Receipt Date: 20050531
  Transmission Date: 20051028
  Serious: Yes (Other)
  Sender: FDA-Public Use
  Company Number: 2005058058

PATIENT
  Age: 70 Year
  Sex: Male

DRUGS (2)
  1. CELEBREX [Suspect]
     Indication: ILL-DEFINED DISORDER
     Dates: start: 20000101
  2. ZOCOR [Concomitant]

REACTIONS (2)
  - CORONARY ARTERY OCCLUSION [None]
  - QUADRUPLE VESSEL BYPASS GRAFT [None]
